FAERS Safety Report 20823829 (Version 1)
Quarter: 2022Q2

REPORT INFORMATION
  Report Type: Spontaneous
  Country: US (occurrence: None)
  Receive Date: 20220512
  Receipt Date: 20220512
  Transmission Date: 20220721
  Serious: Yes (Other)
  Sender: FDA-Public Use
  Company Number: None

PATIENT
  Age: 71 Year
  Sex: Female
  Weight: 58.5 kg

DRUGS (9)
  1. PAXLOVID [Suspect]
     Active Substance: NIRMATRELVIR\RITONAVIR
     Indication: COVID-19
     Dates: start: 20220501, end: 20220504
  2. LIPITOR [Concomitant]
     Active Substance: ATORVASTATIN CALCIUM
  3. ZETIA [Concomitant]
     Active Substance: EZETIMIBE
  4. Deplim [Concomitant]
  5. VITAMIN B12 [Concomitant]
     Active Substance: CYANOCOBALAMIN
  6. daily vit [Concomitant]
  7. FISH OIL [Concomitant]
  8. VIT D [Concomitant]
  9. COQ [Concomitant]

REACTIONS (5)
  - Feeling abnormal [None]
  - Blood pressure increased [None]
  - Fatigue [None]
  - Diarrhoea [None]
  - Dysgeusia [None]

NARRATIVE: CASE EVENT DATE: 20220504
